FAERS Safety Report 10452778 (Version 1)
Quarter: 2014Q3

REPORT INFORMATION
  Report Type: Report from Study
  Country: US (occurrence: US)
  Receive Date: 20140915
  Receipt Date: 20140915
  Transmission Date: 20150326
  Serious: Yes (Hospitalization, Other)
  Sender: FDA-Public Use
  Company Number: US-SA-2014SA123430

PATIENT
  Age: 63 Year
  Sex: Female

DRUGS (12)
  1. LAMICTAL [Suspect]
     Active Substance: LAMOTRIGINE
     Indication: CONVULSION
     Route: 065
  2. ASPIRIN. [Concomitant]
     Active Substance: ASPIRIN
  3. PREDNISONE. [Suspect]
     Active Substance: PREDNISONE
     Route: 065
     Dates: start: 2013
  4. CLONAZEPAM. [Concomitant]
     Active Substance: CLONAZEPAM
  5. LAMICTAL [Suspect]
     Active Substance: LAMOTRIGINE
     Indication: CONVULSION
     Route: 048
     Dates: start: 1999
  6. PREDNISONE. [Suspect]
     Active Substance: PREDNISONE
     Route: 065
  7. SIMVASTATIN. [Concomitant]
     Active Substance: SIMVASTATIN
  8. PLAVIX [Suspect]
     Active Substance: CLOPIDOGREL BISULFATE
     Route: 065
  9. METOPROLOL [Concomitant]
     Active Substance: METOPROLOL
  10. LAMICTAL [Suspect]
     Active Substance: LAMOTRIGINE
     Indication: CONVULSION
     Dosage: DOSE: 100 MG IN MORNING AND 200 MG UN THE EVENING.
     Route: 048
     Dates: start: 201404
  11. KEPPRA [Concomitant]
     Active Substance: LEVETIRACETAM
  12. DIOVAN [Concomitant]
     Active Substance: VALSARTAN

REACTIONS (18)
  - Large intestinal ulcer [Recovered/Resolved]
  - Fall [Unknown]
  - Coma [Unknown]
  - Parosmia [Unknown]
  - Skin discolouration [Unknown]
  - Adverse event [Recovered/Resolved]
  - Daydreaming [Unknown]
  - Contusion [Unknown]
  - Granuloma [Recovered/Resolved]
  - Head injury [Unknown]
  - Euphoric mood [Unknown]
  - Dyspnoea [Unknown]
  - Drug effect increased [Unknown]
  - Large intestine polyp [Recovered/Resolved]
  - Wrong drug administered [Unknown]
  - Convulsion [Not Recovered/Not Resolved]
  - Myocardial infarction [Not Recovered/Not Resolved]
  - Clavicle fracture [Unknown]

NARRATIVE: CASE EVENT DATE: 200709
